FAERS Safety Report 20681423 (Version 2)
Quarter: 2022Q2

REPORT INFORMATION
  Report Type: Spontaneous
  Country: RO (occurrence: None)
  Receive Date: 20220406
  Receipt Date: 20220412
  Transmission Date: 20220720
  Serious: Yes (Other)
  Sender: FDA-Public Use
  Company Number: RO-ROCHE-3065811

PATIENT
  Age: 25 Year
  Sex: Female

DRUGS (2)
  1. RITUXIMAB [Suspect]
     Active Substance: RITUXIMAB
     Indication: Primary mediastinal large B-cell lymphoma
     Route: 065
  2. POLATUZUMAB VEDOTIN [Suspect]
     Active Substance: POLATUZUMAB VEDOTIN
     Indication: Primary mediastinal large B-cell lymphoma
     Route: 065

REACTIONS (4)
  - COVID-19 [Unknown]
  - Primary mediastinal large B-cell lymphoma recurrent [Unknown]
  - Immunosuppression [Unknown]
  - Infection [Unknown]

NARRATIVE: CASE EVENT DATE: 20211001
